FAERS Safety Report 7040942-4 (Version None)
Quarter: 2010Q4

REPORT INFORMATION
  Report Type: 
  Country: None (occurrence: None)
  Receive Date: 20101006
  Receipt Date: 20100927
  Transmission Date: 20110411
  Serious: Yes (Hospitalization)
  Sender: FDA-Public Use
  Company Number: WAES 1009USA04945

PATIENT
  Age: 54 Year
  Sex: Female

DRUGS (15)
  1. CAP VORINOSTAT UNK [Suspect]
     Indication: BREAST CANCER
     Dosage: 300 MG/DAILY/PO
     Route: 048
     Dates: start: 20100712, end: 20100716
  2. IXABEPITONE UNK [Suspect]
     Indication: BREAST CANCER
     Dosage: 32 MG/M[2]/Q3W/IV
     Route: 042
     Dates: start: 20100713
  3. KLOR-CON [Concomitant]
  4. LANTUS [Concomitant]
  5. LASIX [Concomitant]
  6. SYNTHROID [Concomitant]
  7. ULTRAM [Concomitant]
  8. ZANTAC [Concomitant]
  9. ZOCOR [Concomitant]
  10. ALFALFA [Concomitant]
  11. ATENOLOL [Concomitant]
  12. BENAZEPRIL HYDROCHLORIDE [Concomitant]
  13. FERROUS SULFATE [Concomitant]
  14. VITAMIN B (UNSPECIFIED) [Concomitant]
  15. VITAMINS (UNSPECIFIED) [Concomitant]

REACTIONS (4)
  - CELLULITIS [None]
  - DEVICE RELATED INFECTION [None]
  - ENTEROBACTER INFECTION [None]
  - LUNG INFILTRATION [None]
